FAERS Safety Report 21224526 (Version 2)
Quarter: 2022Q4

REPORT INFORMATION
  Report Type: Other
  Country: US (occurrence: None)
  Receive Date: 20220817
  Receipt Date: 20221123
  Transmission Date: 20230113
  Serious: Yes (Other)
  Sender: FDA-Public Use
  Company Number: US-ROCHE-3161154

PATIENT
  Age: 67 Year
  Sex: Female
  Weight: 111.68 kg

DRUGS (1)
  1. OCREVUS [Suspect]
     Active Substance: OCRELIZUMAB
     Indication: Relapsing-remitting multiple sclerosis
     Route: 042
     Dates: start: 2019

REACTIONS (6)
  - Eye infection [Recovered/Resolved]
  - Upper respiratory tract infection [Recovered/Resolved]
  - Cellulitis [Recovered/Resolved]
  - Rheumatoid arthritis [Recovered/Resolved]
  - Off label use [Unknown]
  - Hordeolum [Recovered/Resolved]

NARRATIVE: CASE EVENT DATE: 20220101
